FAERS Safety Report 6722111-8 (Version None)
Quarter: 2010Q2

REPORT INFORMATION
  Report Type: 
  Country: None (occurrence: None)
  Receive Date: 20100505
  Receipt Date: 20100205
  Transmission Date: 20101027
  Serious: No
  Sender: FDA-Public Use
  Company Number: WAES 0911USA04131

PATIENT
  Age: 56 Year
  Sex: Male

DRUGS (5)
  1. ISENTRESS [Suspect]
     Indication: HIV INFECTION
     Dosage: 400 MG/BID/PO
     Route: 048
     Dates: start: 20091111, end: 20091120
  2. EPZICOM [Concomitant]
  3. LIPITOR [Concomitant]
  4. TESTIM [Concomitant]
  5. VITAMIN D (UNSPECIFIED) [Concomitant]

REACTIONS (5)
  - ABDOMINAL DISTENSION [None]
  - ABDOMINAL PAIN [None]
  - GASTROOESOPHAGEAL REFLUX DISEASE [None]
  - MIDDLE INSOMNIA [None]
  - NAUSEA [None]
